FAERS Safety Report 11640593 (Version 1)
Quarter: 2015Q4

REPORT INFORMATION
  Report Type: Spontaneous
  Country: US (occurrence: US)
  Receive Date: 20151019
  Receipt Date: 20151019
  Transmission Date: 20160304
  Serious: Yes (Other)
  Sender: FDA-Public Use
  Company Number: US-TEVA-588097USA

PATIENT
  Age: 68 Year
  Sex: Female

DRUGS (3)
  1. METFORMIN [Suspect]
     Active Substance: METFORMIN HYDROCHLORIDE
     Route: 065
     Dates: start: 2006
  2. CLOPIDOGREL [Suspect]
     Active Substance: CLOPIDOGREL BISULFATE
     Route: 065
     Dates: end: 20150126
  3. MONTELUKAST [Suspect]
     Active Substance: MONTELUKAST SODIUM
     Route: 065

REACTIONS (9)
  - Electrocardiogram QT prolonged [Recovered/Resolved]
  - Respiratory tract congestion [Unknown]
  - Diarrhoea [Unknown]
  - Bronchitis [Unknown]
  - Asthma [Unknown]
  - Malaise [Unknown]
  - Nausea [Recovered/Resolved]
  - Feeding disorder [Recovered/Resolved]
  - Product substitution issue [Unknown]

NARRATIVE: CASE EVENT DATE: 2006
